FAERS Safety Report 5698039-1 (Version None)
Quarter: 2008Q2

REPORT INFORMATION
  Report Type: 
  Country: None (occurrence: None)
  Receive Date: 20080408
  Receipt Date: 20080331
  Transmission Date: 20081010
  Serious: Yes (Hospitalization)
  Sender: FDA-Public Use
  Company Number: GB-PFIZER INC-2008028560

PATIENT
  Age: 59 Year
  Sex: Male

DRUGS (4)
  1. PHENYTOIN [Suspect]
     Indication: EPILEPSY
     Dosage: DAILY DOSE:300MG
  2. ALCOHOL [Suspect]
  3. OMEPRAZOLE [Concomitant]
  4. VITAMIN B COMPLEX CAP [Concomitant]

REACTIONS (7)
  - ATAXIA [None]
  - DEPRESSED LEVEL OF CONSCIOUSNESS [None]
  - DYSARTHRIA [None]
  - GAMMA-GLUTAMYLTRANSFERASE INCREASED [None]
  - MEAN CELL VOLUME INCREASED [None]
  - NYSTAGMUS [None]
  - THERAPEUTIC AGENT TOXICITY [None]
